FAERS Safety Report 7292561-2 (Version None)
Quarter: 2011Q1

REPORT INFORMATION
  Report Type: 
  Country: None (occurrence: None)
  Receive Date: 20110215
  Receipt Date: 20110203
  Transmission Date: 20110831
  Serious: Yes (Death)
  Sender: FDA-Public Use
  Company Number: JO-CELGENEUS-088-21880-11011634

PATIENT
  Sex: Female
  Weight: 65 kg

DRUGS (5)
  1. ARANESP [Concomitant]
     Route: 065
     Dates: start: 20110111, end: 20110113
  2. DECADRON [Concomitant]
     Route: 065
     Dates: start: 20110103, end: 20110110
  3. LEXOTANIL [Concomitant]
     Route: 065
     Dates: start: 20110103, end: 20110117
  4. LASIX [Concomitant]
     Route: 051
     Dates: start: 20110111, end: 20110113
  5. REVLIMID [Suspect]
     Route: 048

REACTIONS (3)
  - SUBARACHNOID HAEMORRHAGE [None]
  - DISEASE PROGRESSION [None]
  - THROMBOCYTOPENIA [None]
